FAERS Safety Report 8819825 (Version 1)
Quarter: 2012Q4

REPORT INFORMATION
  Report Type: 
  Country: US (occurrence: US)
  Receive Date: 20121002
  Receipt Date: 20121002
  Transmission Date: 20130627
  Serious: No
  Sender: FDA-Public Use
  Company Number: US-009507513-1209USA005850

PATIENT
  Sex: Male

DRUGS (3)
  1. SAPHRIS [Suspect]
     Dosage: 5 mg, hs
     Route: 060
  2. CYMBALTA [Concomitant]
  3. LAMICTAL [Concomitant]

REACTIONS (5)
  - Sudden onset of sleep [Unknown]
  - Fall [Unknown]
  - Somnolence [Unknown]
  - Sedation [Unknown]
  - Dry mouth [Unknown]
